FAERS Safety Report 14267630 (Version 1)
Quarter: 2017Q4

REPORT INFORMATION
  Report Type: Spontaneous
  Country: US (occurrence: US)
  Receive Date: 20171210
  Receipt Date: 20171210
  Transmission Date: 20180321
  Serious: Yes (Other)
  Sender: FDA-Public Use
  Company Number: None

PATIENT
  Sex: Male
  Weight: 92.25 kg

DRUGS (4)
  1. TRUVADA [Suspect]
     Active Substance: EMTRICITABINE\TENOFOVIR DISOPROXIL FUMARATE
     Indication: PROPHYLAXIS AGAINST HIV INFECTION
     Dosage: ?          QUANTITY:1 TABLET(S);?
     Route: 048
     Dates: start: 20171123, end: 20171124
  2. VITAMIN D3 [Concomitant]
     Active Substance: CHOLECALCIFEROL
  3. TOPAMAX [Concomitant]
     Active Substance: TOPIRAMATE
  4. LORATADINE-D [Concomitant]

REACTIONS (5)
  - Cough [None]
  - Oropharyngeal pain [None]
  - Malaise [None]
  - Pharyngeal oedema [None]
  - Throat irritation [None]

NARRATIVE: CASE EVENT DATE: 20171124
